FAERS Safety Report 7464470-7 (Version None)
Quarter: 2011Q2

REPORT INFORMATION
  Report Type: 
  Country: None (occurrence: None)
  Receive Date: 20110509
  Receipt Date: 20110504
  Transmission Date: 20111010
  Serious: Yes (Hospitalization, Other)
  Sender: FDA-Public Use
  Company Number: US-PFIZER INC-2011096167

PATIENT
  Age: 60 Year
  Sex: Female

DRUGS (4)
  1. LATUDA [Suspect]
     Indication: INSOMNIA
     Dosage: 40 MG, 1X/DAY HS
     Route: 048
     Dates: start: 20110323, end: 20110323
  2. TRILEPTAL [Concomitant]
  3. GEODON [Suspect]
     Dosage: UNK
  4. TEMAZEPAM [Concomitant]
     Dosage: UNK
     Dates: end: 20110322

REACTIONS (5)
  - TARDIVE DYSKINESIA [None]
  - HYPERTENSION [None]
  - MOOD SWINGS [None]
  - DYSTONIA [None]
  - INSOMNIA [None]
